FAERS Safety Report 8852641 (Version 1)
Quarter: 2012Q4

REPORT INFORMATION
  Report Type: 
  Country: MX (occurrence: MX)
  Receive Date: 20121022
  Receipt Date: 20121022
  Transmission Date: 20130627
  Serious: Yes (Hospitalization)
  Sender: FDA-Public Use
  Company Number: MX-B.I. PHARMACEUTICALS,INC./RIDGEFIELD-2012-MX-00277MX

PATIENT
  Age: 91 Year
  Sex: Male

DRUGS (2)
  1. DABIGATRAN ETEXILATE [Suspect]
     Indication: CEREBROVASCULAR ACCIDENT PROPHYLAXIS
     Dosage: 220 mg
     Route: 048
     Dates: start: 201202
  2. MICARDIS PLUS [Suspect]
     Indication: HYPERTENSION
     Dosage: Strenght: 80/12.5mg, Daily dose: one daily
     Route: 048

REACTIONS (2)
  - Embolism [Recovered/Resolved]
  - Deep vein thrombosis [Not Recovered/Not Resolved]
